FAERS Safety Report 4568900-X (Version None)
Quarter: 2005Q1

REPORT INFORMATION
  Report Type: 
  Country: None (occurrence: None)
  Receive Date: 20050203
  Receipt Date: 20050124
  Transmission Date: 20050727
  Serious: Yes (Disabling, Other)
  Sender: FDA-Public Use
  Company Number: US-JNJFOC-20040400709

PATIENT
  Sex: Male
  Weight: 121.11 kg

DRUGS (11)
  1. REMICADE [Suspect]
     Route: 042
  2. REMICADE [Suspect]
     Route: 042
  3. REMICADE [Suspect]
     Indication: DRUG USE FOR UNKNOWN INDICATION
     Route: 042
  4. SINEMET [Concomitant]
  5. SINEMET [Concomitant]
     Dosage: 25-100 AT BEDTIME
  6. ARAVA [Concomitant]
  7. CARDURA [Concomitant]
  8. UNIVASE [Concomitant]
  9. SOMA [Concomitant]
  10. MOTRIN [Concomitant]
  11. LOTRIMIN [Concomitant]

REACTIONS (3)
  - HERPES ZOSTER [None]
  - OPTIC ISCHAEMIC NEUROPATHY [None]
  - SPINAL OPERATION [None]
